FAERS Safety Report 16569556 (Version 4)
Quarter: 2019Q3

REPORT INFORMATION
  Report Type: Report from Study
  Country: US (occurrence: US)
  Receive Date: 20190715
  Receipt Date: 20190918
  Transmission Date: 20191004
  Serious: Yes (Other)
  Sender: FDA-Public Use
  Company Number: PHEH2019US028966

PATIENT
  Sex: Female

DRUGS (1)
  1. COSENTYX [Suspect]
     Active Substance: SECUKINUMAB
     Indication: PSORIASIS
     Dosage: 300 MG, QMO
     Route: 058

REACTIONS (7)
  - Psoriasis [Recovering/Resolving]
  - Gait disturbance [Unknown]
  - Pain of skin [Unknown]
  - Rash [Unknown]
  - Anxiety [Unknown]
  - Stress [Unknown]
  - Blister [Unknown]
